FAERS Safety Report 8313713-6 (Version None)
Quarter: 2012Q2

REPORT INFORMATION
  Report Type: 
  Country: None (occurrence: None)
  Receive Date: 20120426
  Receipt Date: 20120411
  Transmission Date: 20120825
  Serious: Yes (Death, Hospitalization)
  Sender: FDA-Public Use
  Company Number: US-CELGENEUS-163-21880-12031505

PATIENT
  Sex: Male
  Weight: 75.5 kg

DRUGS (4)
  1. REVLIMID [Suspect]
     Indication: MULTIPLE MYELOMA
     Dosage: 100 MILLIGRAM
     Route: 048
     Dates: start: 20111116, end: 20111125
  2. MELPHALAN HYDROCHLORIDE [Suspect]
     Indication: MULTIPLE MYELOMA
     Route: 065
  3. ALBUTEROL [Concomitant]
     Route: 065
  4. ACYCLOVIR [Concomitant]
     Indication: PROPHYLAXIS
     Route: 065

REACTIONS (3)
  - SEPTIC SHOCK [None]
  - PNEUMONIA [None]
  - RESPIRATORY FAILURE [None]
